FAERS Safety Report 21369618 (Version 3)
Quarter: 2022Q4

REPORT INFORMATION
  Report Type: Spontaneous
  Country: DE (occurrence: DE)
  Receive Date: 20220923
  Receipt Date: 20221007
  Transmission Date: 20230112
  Serious: Yes (Other)
  Sender: FDA-Public Use
  Company Number: DE-ABBVIE-4128765

PATIENT
  Age: 67 Year
  Sex: Male

DRUGS (1)
  1. RINVOQ [Suspect]
     Active Substance: UPADACITINIB
     Indication: Rheumatoid arthritis
     Route: 048
     Dates: start: 202102, end: 202202

REACTIONS (2)
  - Psoriasis [Recovered/Resolved]
  - Oral herpes [Unknown]

NARRATIVE: CASE EVENT DATE: 20210801
